FAERS Safety Report 7579002-2 (Version None)
Quarter: 2011Q2

REPORT INFORMATION
  Report Type: 
  Country: None (occurrence: None)
  Receive Date: 20110628
  Receipt Date: 20110615
  Transmission Date: 20111010
  Serious: Yes (Other)
  Sender: FDA-Public Use
  Company Number: JP-BAYER-2011-022644

PATIENT
  Age: 75 Year
  Sex: Male
  Weight: 48 kg

DRUGS (8)
  1. ADRENAL CORTICAL EXTRACT [Concomitant]
     Indication: MULTIPLE MYELOMA
     Dosage: UNK
     Route: 065
  2. BASEN [Suspect]
     Indication: DIABETES MELLITUS
     Dosage: 0.2 MG, TID
     Route: 048
     Dates: start: 20070201, end: 20110211
  3. PASIL [Concomitant]
     Dosage: UNK
     Route: 041
     Dates: start: 20110204, end: 20110204
  4. CIPROFLOXACIN [Interacting]
     Indication: PNEUMONIA
     Dosage: 200 MG, QD
     Route: 041
     Dates: start: 20110208
  5. TIENAM [Concomitant]
     Indication: PNEUMONIA
     Dosage: DAILY DOSE .25 MG
     Route: 041
     Dates: start: 20110204
  6. BASEN [Suspect]
     Dosage: 0.2 MG, TID
     Route: 048
     Dates: start: 20110215
  7. FAMOTIDINE [Concomitant]
     Dosage: 10 MG, QD
     Route: 048
  8. MITIGLINIDE [Interacting]
     Indication: DIABETES MELLITUS
     Dosage: 10 MG, TID
     Route: 048
     Dates: start: 20070401, end: 20110211

REACTIONS (1)
  - HYPOGLYCAEMIA [None]
